FAERS Safety Report 16259931 (Version 1)
Quarter: 2019Q2

REPORT INFORMATION
  Report Type: Spontaneous
  Country: FR (occurrence: FR)
  Receive Date: 20190501
  Receipt Date: 20190501
  Transmission Date: 20190711
  Serious: Yes (Death, Other)
  Sender: FDA-Public Use
  Company Number: FR-MYLANLABS-2019M1040845

PATIENT
  Age: 70 Year
  Sex: Male

DRUGS (15)
  1. ONBREZ [Concomitant]
     Active Substance: INDACATEROL
     Dosage: 1 DOSAGE FORM, QD
  2. COVERSYL                           /00790702/ [Concomitant]
     Active Substance: PERINDOPRIL
     Dosage: 1 DF, QD
  3. CIFLOX                             /00697201/ [Concomitant]
     Active Substance: CIPROFLOXACIN
     Dosage: 2 DF, QD
  4. LASILIX                            /00032601/ [Concomitant]
     Active Substance: FUROSEMIDE
     Dosage: 4 DOSAGE FORM, QD
  5. FUROSEMIDE. [Suspect]
     Active Substance: FUROSEMIDE
     Indication: PRODUCT USED FOR UNKNOWN INDICATION
     Dosage: UNK
  6. CEFPODOXIME [Concomitant]
     Active Substance: CEFPODOXIME
     Dosage: UNK
     Dates: start: 20171219
  7. BACTRIM [Concomitant]
     Active Substance: SULFAMETHOXAZOLE\TRIMETHOPRIM
     Dosage: 2 DF, QD
     Dates: start: 20180221
  8. PYOSTACINE [Concomitant]
     Active Substance: PRISTINAMYCIN
     Dosage: UNK
     Dates: start: 20180112
  9. DOLIPRANE [Concomitant]
     Active Substance: ACETAMINOPHEN
     Dosage: UNK
  10. LASILIX                            /00032601/ [Suspect]
     Active Substance: FUROSEMIDE
     Indication: PRODUCT USED FOR UNKNOWN INDICATION
     Dosage: 1 DOSAGE FORM, QD (LASILIX RETARD)
     Route: 048
  11. ALLOPURINOL. [Concomitant]
     Active Substance: ALLOPURINOL
     Dosage: 1 DOSAGE FORM, QD
  12. FURADANTINE [Concomitant]
     Active Substance: NITROFURANTOIN
     Dosage: 3 DF, QD
  13. SINTROM [Concomitant]
     Active Substance: ACENOCOUMAROL
     Dosage: UNK, TID (? DF 3 TIMES DAILY)
  14. JANUMET [Concomitant]
     Active Substance: METFORMIN HYDROCHLORIDE\SITAGLIPTIN PHOSPHATE
     Dosage: 1 DOSAGE FORM, QD
  15. METFORMINE                         /00082701/ [Concomitant]
     Active Substance: METFORMIN HYDROCHLORIDE
     Dosage: UNK

REACTIONS (2)
  - Cardiac arrest [Fatal]
  - Cardiac failure [Fatal]
